FAERS Safety Report 4550152-8 (Version None)
Quarter: 2005Q1

REPORT INFORMATION
  Report Type: 
  Country: None (occurrence: None)
  Receive Date: 20050107
  Receipt Date: 20040825
  Transmission Date: 20050727
  Serious: No
  Sender: FDA-Public Use
  Company Number: 203079

PATIENT
  Age: 53 Year
  Sex: Female
  Weight: 102.0593 kg

DRUGS (16)
  1. AVONEX [Suspect]
     Indication: MULTIPLE SCLEROSIS
     Dosage: 30 UG; QW; IM
     Route: 030
  2. CIPRO [Concomitant]
  3. SKELAXIN [Concomitant]
  4. ZETIA [Concomitant]
  5. ALLEGRA [Concomitant]
  6. OMEPRAZOLE [Concomitant]
  7. DEMADEX [Concomitant]
  8. PROVIGIL [Concomitant]
  9. AMBIEN [Concomitant]
  10. ACTOS [Concomitant]
  11. ASPIRIN [Concomitant]
  12. EFFEXOR [Concomitant]
  13. TOPAMAX [Concomitant]
  14. HYZAAR [Concomitant]
  15. NEURONTIN [Concomitant]
  16. MAXALT [Concomitant]

REACTIONS (18)
  - ANKLE FRACTURE [None]
  - ASTHENIA [None]
  - BURNING SENSATION [None]
  - CHEST PAIN [None]
  - CONTUSION [None]
  - DIABETES MELLITUS [None]
  - FALL [None]
  - FLUSHING [None]
  - FOOT FRACTURE [None]
  - INFLUENZA LIKE ILLNESS [None]
  - MIGRAINE [None]
  - MULTIPLE SCLEROSIS RELAPSE [None]
  - NAUSEA [None]
  - OBESITY [None]
  - PRURITUS [None]
  - URINARY RETENTION [None]
  - URINARY TRACT INFECTION [None]
  - VISUAL DISTURBANCE [None]
